FAERS Safety Report 9531822 (Version 2)
Quarter: 2013Q3

REPORT INFORMATION
  Report Type: Spontaneous
  Country: US (occurrence: US)
  Receive Date: 20130918
  Receipt Date: 20130918
  Transmission Date: 20140515
  Serious: No
  Sender: FDA-Public Use
  Company Number: US-PFIZER INC-2012103602

PATIENT
  Age: 69 Year
  Sex: Female

DRUGS (7)
  1. CELEBREX [Suspect]
     Indication: PAIN
     Dosage: 200 MG, 2X/DAY
  2. EFFEXOR XR [Suspect]
     Indication: PAIN
     Dosage: 150 MG, 2X/DAY
  3. NORVASC [Suspect]
     Indication: PAIN
     Dosage: 5 MG, (ONCE A HS /ONCE AT NIGHT )
  4. PREMPRO [Suspect]
     Indication: PAIN
     Dosage: 0.3-1.5 MG ONCE DAILY
  5. GABAPENTIN [Suspect]
     Indication: PAIN
     Dosage: 600 MG, 4X/DAY
  6. LORAZEPAM [Suspect]
     Indication: PAIN
     Dosage: UNK
  7. DIOVAN [Suspect]
     Indication: PAIN
     Dosage: UNK

REACTIONS (2)
  - Drug ineffective [Unknown]
  - Intentional drug misuse [Unknown]
